FAERS Safety Report 23965840 (Version 3)
Quarter: 2024Q2

REPORT INFORMATION
  Report Type: Spontaneous
  Country: GB (occurrence: GB)
  Receive Date: 20240612
  Receipt Date: 20240625
  Transmission Date: 20240716
  Serious: Yes (Hospitalization, Disabling, Other)
  Sender: FDA-Public Use
  Company Number: GB-MHRA-MED-202405310722089710-BDLPW

PATIENT
  Age: 66 Year
  Sex: Male
  Weight: 60 kg

DRUGS (3)
  1. LACOSAMIDE [Suspect]
     Active Substance: LACOSAMIDE
     Indication: Epilepsy
     Dosage: 50 MILLIGRAM, TWO TIMES A DAY (MORNING AND NIGHT)
     Route: 065
     Dates: start: 20240204, end: 20240531
  2. LACOSAMIDE [Suspect]
     Active Substance: LACOSAMIDE
     Dosage: 50 MILLIGRAM, TWO TIMES A DAY (100 MILLIGRAM ONCE A DAY)
     Route: 065
     Dates: start: 20240402, end: 20240531
  3. LAMOTRIGINE [Concomitant]
     Active Substance: LAMOTRIGINE
     Indication: Epilepsy
     Dosage: UNK
     Route: 065

REACTIONS (4)
  - Amnesia [Not Recovered/Not Resolved]
  - Delirium [Unknown]
  - Medication error [Unknown]
  - Headache [Unknown]

NARRATIVE: CASE EVENT DATE: 20240501
